FAERS Safety Report 14486992 (Version 1)
Quarter: 2018Q1

REPORT INFORMATION
  Report Type: Spontaneous
  Country: US (occurrence: US)
  Receive Date: 20180204
  Receipt Date: 20180204
  Transmission Date: 20180509
  Serious: Yes (Life-Threatening)
  Sender: FDA-Public Use
  Company Number: None

PATIENT
  Age: 34 Year
  Sex: Female
  Weight: 65.25 kg

DRUGS (4)
  1. IBUPROFEN. [Concomitant]
     Active Substance: IBUPROFEN
  2. LYRICA [Suspect]
     Active Substance: PREGABALIN
     Indication: PAIN
  3. MULTIVITAMIN [Concomitant]
     Active Substance: VITAMINS
  4. PLAQUENIL- IUD [Concomitant]

REACTIONS (11)
  - Depression [None]
  - Joint swelling [None]
  - Pregnancy [None]
  - Hostility [None]
  - Abnormal behaviour [None]
  - Weight increased [None]
  - Psychotic disorder [None]
  - Peripheral swelling [None]
  - Therapy cessation [None]
  - Personality change [None]
  - Drug withdrawal syndrome [None]
